FAERS Safety Report 7558359-2 (Version None)
Quarter: 2011Q2

REPORT INFORMATION
  Report Type: 
  Country: None (occurrence: None)
  Receive Date: 20110620
  Receipt Date: 20110614
  Transmission Date: 20111010
  Serious: Yes (Death)
  Sender: FDA-Public Use
  Company Number: US-ASTRAZENECA-2011SE32844

PATIENT
  Age: 40 Year
  Sex: Female

DRUGS (14)
  1. NEURONTIN [Concomitant]
     Route: 048
  2. SEROQUEL [Suspect]
     Indication: BIPOLAR DISORDER
     Route: 048
     Dates: start: 20090601
  3. DEPAKOTE [Concomitant]
     Route: 048
  4. SALT [Concomitant]
     Indication: HYPONATRAEMIA
  5. VITAMIN D [Concomitant]
  6. ATIVAN [Concomitant]
     Route: 048
  7. NEURONTIN [Concomitant]
     Route: 048
  8. SEROQUEL [Suspect]
     Route: 048
     Dates: start: 20090601
  9. CITRACAL [Concomitant]
  10. DEPLIN [Concomitant]
     Route: 048
  11. BACLOFEN [Concomitant]
     Route: 048
  12. PREDNISONE [Concomitant]
     Route: 048
  13. CELLCEPT [Concomitant]
     Indication: SARCOIDOSIS
  14. NORCO [Concomitant]
     Dosage: 10-325 UP TO TID

REACTIONS (2)
  - MALAISE [None]
  - SARCOIDOSIS [None]
